FAERS Safety Report 5320662-4 (Version None)
Quarter: 2007Q2

REPORT INFORMATION
  Report Type: 
  Country: None (occurrence: None)
  Receive Date: 20070502
  Receipt Date: 20070418
  Transmission Date: 20071010
  Serious: Yes (Death)
  Sender: FDA-Public Use
  Company Number: 2007AP000437

PATIENT
  Age: 57 Year
  Sex: Female

DRUGS (2)
  1. TIZANIDINE HYDROCHLORIDE [Suspect]
     Dates: end: 20040101
  2. DIAZEPAM [Suspect]
     Dates: end: 20040101

REACTIONS (5)
  - BLOOD ETHANOL [None]
  - COMPLETED SUICIDE [None]
  - DRUG TOXICITY [None]
  - LIVIDITY [None]
  - LOSS OF CONSCIOUSNESS [None]
